FAERS Safety Report 6642290-0 (Version None)
Quarter: 2010Q1

REPORT INFORMATION
  Report Type: 
  Country: None (occurrence: None)
  Receive Date: 20100316
  Receipt Date: 20100305
  Transmission Date: 20100710
  Serious: Yes (Other)
  Sender: FDA-Public Use
  Company Number: JPI-P-009798

PATIENT
  Age: 57 Year
  Sex: Female
  Weight: 61.2356 kg

DRUGS (4)
  1. XYREM [Suspect]
     Indication: NARCOLEPSY
     Dosage: 4.5 GM (2.25 GM, 2 IN 1 D), ORAL; 9 GM (4.5 GM, 2 IN 1 D), ORAL; 7.5 GM (3.75 GM, 2 IN 1 D), ORAL
     Route: 048
     Dates: start: 20091229
  2. XYREM [Suspect]
     Indication: NARCOLEPSY
     Dosage: 4.5 GM (2.25 GM, 2 IN 1 D), ORAL; 9 GM (4.5 GM, 2 IN 1 D), ORAL; 7.5 GM (3.75 GM, 2 IN 1 D), ORAL
     Route: 048
     Dates: start: 20100119
  3. ESTROGEN REPLACEMENT [Suspect]
     Indication: OESTROGEN REPLACEMENT THERAPY
     Dates: start: 20060101, end: 20100201
  4. FEXOFENIDINE HYDROCHLORIDE [Concomitant]

REACTIONS (16)
  - ANXIETY [None]
  - BACK PAIN [None]
  - BLOOD PRESSURE INCREASED [None]
  - BREAST CANCER FEMALE [None]
  - CONFUSIONAL STATE [None]
  - DISTURBANCE IN ATTENTION [None]
  - FATIGUE [None]
  - FLATULENCE [None]
  - HOT FLUSH [None]
  - MUSCULAR WEAKNESS [None]
  - NECK PAIN [None]
  - PARAESTHESIA [None]
  - SLUGGISHNESS [None]
  - URINE ABNORMALITY [None]
  - VISION BLURRED [None]
  - WEIGHT DECREASED [None]
